FAERS Safety Report 5060341-4 (Version None)
Quarter: 2006Q3

REPORT INFORMATION
  Report Type: 
  Country: None (occurrence: None)
  Receive Date: 20060718
  Receipt Date: 20060712
  Transmission Date: 20061208
  Serious: Yes (Hospitalization)
  Sender: FDA-Public Use
  Company Number: TPA2006A00797

PATIENT
  Age: 63 Year
  Sex: Male
  Weight: 164.6557 kg

DRUGS (16)
  1. ACTOS [Suspect]
     Indication: DIABETES MELLITUS NON-INSULIN-DEPENDENT
     Dosage: 30 MG, 1 IN 1 D, PER ORAL; SEE IMAGE
     Route: 048
     Dates: start: 20021112, end: 20050509
  2. ACTOS [Suspect]
     Indication: INSULIN RESISTANCE
     Dosage: 30 MG, 1 IN 1 D, PER ORAL; SEE IMAGE
     Route: 048
     Dates: start: 20021112, end: 20050509
  3. ACTOS [Suspect]
     Indication: DIABETES MELLITUS NON-INSULIN-DEPENDENT
     Dosage: 30 MG, 1 IN 1 D, PER ORAL; SEE IMAGE
     Route: 048
     Dates: start: 20050509, end: 20060506
  4. ACTOS [Suspect]
     Indication: INSULIN RESISTANCE
     Dosage: 30 MG, 1 IN 1 D, PER ORAL; SEE IMAGE
     Route: 048
     Dates: start: 20050509, end: 20060506
  5. METOLAZONE (METOLAZONE) (5 MILLIGRAM) [Suspect]
     Indication: FLUID RETENTION
     Dosage: 5 MG, 3 X A WEEK, PER ORAL
     Route: 048
     Dates: start: 20050501
  6. NOVOLOG 70/30 (INSULIN ASPART, PROTAMINE INSULIN ASPART) [Concomitant]
  7. NOVOLOG [Concomitant]
  8. LANTUS [Concomitant]
  9. LITHIUM (LITHIUM) [Concomitant]
  10. TORSEMIDE [Concomitant]
  11. LEVOTHYROXINE SODIUM [Concomitant]
  12. MAG OXIDE (MAGNESIUM OXIDE) [Concomitant]
  13. KLOR-CON [Concomitant]
  14. EANINE (ALL OTHER THERAPEUTIC PRODUCTS) [Concomitant]
  15. ALTACE [Concomitant]
  16. DIAZEPAM [Concomitant]

REACTIONS (5)
  - DEHYDRATION [None]
  - DIVERTICULITIS [None]
  - DIZZINESS [None]
  - FATIGUE [None]
  - WEIGHT INCREASED [None]
